FAERS Safety Report 17829368 (Version 2)
Quarter: 2020Q2

REPORT INFORMATION
  Report Type: Spontaneous
  Country: JP (occurrence: JP)
  Receive Date: 20200527
  Receipt Date: 20200615
  Transmission Date: 20200714
  Serious: Yes (Hospitalization, Other)
  Sender: FDA-Public Use
  Company Number: JP-ACCORD-183163

PATIENT
  Age: 58 Year
  Sex: Female

DRUGS (2)
  1. METHOTREXATE. [Suspect]
     Active Substance: METHOTREXATE
     Indication: RHEUMATOID ARTHRITIS
     Dosage: 2 MG/WEEK FOR 6 MONTHS AND 4 MG/WEEK FOR 6 MONTHS
  2. PREDNISOLONE. [Concomitant]
     Active Substance: PREDNISOLONE
     Indication: RHEUMATOID ARTHRITIS
     Dosage: 2 MG/WEEK FOR 10 YEARS

REACTIONS (2)
  - Epstein Barr virus positive mucocutaneous ulcer [Recovered/Resolved]
  - Lymphoproliferative disorder [Recovered/Resolved]

NARRATIVE: CASE EVENT DATE: 201805
